FAERS Safety Report 9595302 (Version 1)
Quarter: 2013Q3

REPORT INFORMATION
  Report Type: Spontaneous
  Country: US (occurrence: None)
  Receive Date: 20130927
  Receipt Date: 20130927
  Transmission Date: 20140515
  Serious: Yes (Hospitalization)
  Sender: FDA-Public Use
  Company Number: ABO-13002817

PATIENT
  Age: 88 Year
  Sex: Female
  Weight: 59.6 kg

DRUGS (1)
  1. COMETRIQ (CABOZANTINIB) CAPSULE [Suspect]
     Indication: THYROID CANCER
     Route: 048
     Dates: start: 20130404, end: 20130516

REACTIONS (3)
  - Dehydration [None]
  - Diarrhoea [None]
  - Hyponatraemia [None]
